FAERS Safety Report 21283997 (Version 1)
Quarter: 2022Q3

REPORT INFORMATION
  Report Type: Spontaneous
  Country: IN (occurrence: IN)
  Receive Date: 20220901
  Receipt Date: 20220901
  Transmission Date: 20221027
  Serious: Yes (Other)
  Sender: FDA-Public Use
  Company Number: IN-STRIDES ARCOLAB LIMITED-2022SP010987

PATIENT
  Age: 24 Year
  Sex: Female

DRUGS (3)
  1. MEFENAMIC ACID [Suspect]
     Active Substance: MEFENAMIC ACID
     Indication: Dysmenorrhoea
     Dosage: 500 MILLIGRAM
     Route: 048
  2. MEFENAMIC ACID [Suspect]
     Active Substance: MEFENAMIC ACID
     Dosage: 50MG OF MEFENAMIC-ACID (1/10TH ORIGINAL DOSE), DPT
     Route: 048
  3. MEFENAMIC ACID [Suspect]
     Active Substance: MEFENAMIC ACID
     Dosage: UNK, AFTER 30 MINUTES, THE SECOND DOSE WAS GIVEN
     Route: 065

REACTIONS (1)
  - Fixed eruption [Recovered/Resolved]
